FAERS Safety Report 8791570 (Version 1)
Quarter: 2012Q4

REPORT INFORMATION
  Report Type: Spontaneous
  Country: KR (occurrence: None)
  Receive Date: 20120913
  Receipt Date: 20120913
  Transmission Date: 20130627
  Serious: Yes (Hospitalization)
  Sender: FDA-Public Use
  Company Number: METH20120010

PATIENT
  Age: 46 Year
  Sex: Female

DRUGS (3)
  1. METHYLPREDNISOLONE [Suspect]
     Dosage: TWO COURSES OF PULSE THERAPY
  2. PREDNISOLONE SODIUM PHOSPHATE [Suspect]
     Dosage: PULSE THERAPY (1 mg/kg)
  3. CYCLOPHOSPHAMIDE [Suspect]
     Dosage: 9 COURSES OF PULSE THERAPY OVER 15 MONTH,

REACTIONS (4)
  - Chest X-ray abnormal [None]
  - Epistaxis [None]
  - Carotid artery aneurysm [None]
  - Bronchopulmonary aspergillosis [None]
